FAERS Safety Report 7921428-9 (Version None)
Quarter: 2011Q4

REPORT INFORMATION
  Report Type: 
  Country: None (occurrence: None)
  Receive Date: 20111117
  Receipt Date: 20110930
  Transmission Date: 20120403
  Serious: No
  Sender: FDA-Public Use
  Company Number: US-BAYER-2011-094837

PATIENT
  Age: 70 Year
  Sex: Female
  Weight: 91 kg

DRUGS (2)
  1. MECLIZINE [Concomitant]
  2. ALEVE (CAPLET) [Suspect]
     Indication: ANALGESIC THERAPY
     Dosage: 1 DF, ONCE
     Route: 048
     Dates: start: 20110928, end: 20110928

REACTIONS (1)
  - DYSPEPSIA [None]
